FAERS Safety Report 18459542 (Version 1)
Quarter: 2020Q4

REPORT INFORMATION
  Report Type: Spontaneous
  Country: BY (occurrence: BY)
  Receive Date: 20201103
  Receipt Date: 20201103
  Transmission Date: 20210114
  Serious: Yes (Hospitalization)
  Sender: FDA-Public Use
  Company Number: BY-ARBOR PHARMACEUTICALS, LLC-BY-2020ARB000901

PATIENT
  Age: 50 Year
  Sex: Female

DRUGS (1)
  1. EDARBI [Suspect]
     Active Substance: AZILSARTAN KAMEDOXOMIL
     Indication: HYPERTENSION
     Dosage: 80 MG, QD
     Route: 048
     Dates: start: 202010, end: 202010

REACTIONS (2)
  - Upper limb fracture [Unknown]
  - Rash [Unknown]

NARRATIVE: CASE EVENT DATE: 202010
